FAERS Safety Report 8250535-9 (Version None)
Quarter: 2012Q2

REPORT INFORMATION
  Report Type: 
  Country: None (occurrence: None)
  Receive Date: 20120402
  Receipt Date: 20120327
  Transmission Date: 20120825
  Serious: Yes (Other)
  Sender: FDA-Public Use
  Company Number: US-PFIZER INC-2012078969

PATIENT
  Sex: Female
  Weight: 76.19 kg

DRUGS (11)
  1. LYRICA [Suspect]
     Dosage: 150 MG, 2X/DAY
     Route: 048
  2. COENZYME Q10 [Concomitant]
     Dosage: UNK
  3. METHADONE [Concomitant]
     Indication: PAIN
     Dosage: 60 MG, 3X/DAY
  4. METHADONE [Concomitant]
     Indication: LIGAMENT PAIN
  5. LYRICA [Suspect]
     Indication: FIBROMYALGIA
     Dosage: 50 MG, 2X/DAY
     Route: 048
  6. VITAMIN D [Concomitant]
     Dosage: UNK
  7. METHADONE [Concomitant]
     Indication: MYALGIA
  8. LOVAZA [Concomitant]
     Dosage: UNK
  9. HYDROCODONE [Concomitant]
     Dosage: 10/325 MG UP TO 5-6 A DAY AT EVERY 4-5 HOURS
  10. METHADONE [Concomitant]
     Indication: TENDON PAIN
  11. CALCIUM [Concomitant]
     Dosage: UNK

REACTIONS (8)
  - PAIN [None]
  - WOUND [None]
  - JOINT SWELLING [None]
  - ABASIA [None]
  - LIMB INJURY [None]
  - SCREAMING [None]
  - PAIN IN EXTREMITY [None]
  - OEDEMA PERIPHERAL [None]
